FAERS Safety Report 22203363 (Version 1)
Quarter: 2023Q2

REPORT INFORMATION
  Report Type: Other
  Country: US (occurrence: US)
  Receive Date: 20230412
  Receipt Date: 20230412
  Transmission Date: 20230721
  Serious: Yes (Hospitalization, Other)
  Sender: FDA-Public Use
  Company Number: US-Osmotica_Pharmaceutical_US_LLC-POI0573202300095

PATIENT
  Age: 39 Year
  Sex: Male

DRUGS (4)
  1. DIVIGEL [Suspect]
     Active Substance: ESTRADIOL
     Indication: Product use in unapproved indication
     Route: 065
     Dates: start: 2009, end: 2021
  2. DUTASTERIDE [Suspect]
     Active Substance: DUTASTERIDE
     Indication: Product use in unapproved indication
     Route: 065
     Dates: start: 2009, end: 2021
  3. RISPERIDONE [Suspect]
     Active Substance: RISPERIDONE
     Indication: Hallucination
     Dosage: HS
     Route: 065
     Dates: start: 2021
  4. RISPERIDONE [Suspect]
     Active Substance: RISPERIDONE
     Indication: Paranoia
     Dosage: HS
     Route: 065
     Dates: start: 2009, end: 2021

REACTIONS (3)
  - Hallucination, tactile [Recovering/Resolving]
  - Hallucination, auditory [Recovering/Resolving]
  - Pulmonary embolism [Recovered/Resolved]

NARRATIVE: CASE EVENT DATE: 20210101
